FAERS Safety Report 5498971-8 (Version None)
Quarter: 2007Q4

REPORT INFORMATION
  Report Type: 
  Country: None (occurrence: None)
  Receive Date: 20071026
  Receipt Date: 20070510
  Transmission Date: 20080405
  Serious: No
  Sender: FDA-Public Use
  Company Number: A0650906A

PATIENT
  Age: 64 Year
  Sex: Male

DRUGS (4)
  1. ADVAIR DISKUS 100/50 [Suspect]
     Indication: CHRONIC OBSTRUCTIVE PULMONARY DISEASE
     Route: 055
  2. COMBIVENT [Concomitant]
     Indication: CHRONIC OBSTRUCTIVE PULMONARY DISEASE
     Route: 055
  3. MUCINEX [Concomitant]
  4. ALBUTEROL [Concomitant]
     Route: 055

REACTIONS (3)
  - COUGH [None]
  - DYSPNOEA [None]
  - THERAPEUTIC RESPONSE DECREASED [None]
